FAERS Safety Report 10178109 (Version 1)
Quarter: 2014Q2

REPORT INFORMATION
  Report Type: Spontaneous
  Country: IT (occurrence: IT)
  Receive Date: 20140519
  Receipt Date: 20140519
  Transmission Date: 20141212
  Serious: Yes (Other)
  Sender: FDA-Public Use
  Company Number: IT-DRREDDYS-GER/ITL/14/0040294

PATIENT
  Age: 96 Year
  Sex: Female
  Weight: 55 kg

DRUGS (6)
  1. LEVOFLOXACIN [Suspect]
     Indication: BRONCHITIS
     Route: 048
     Dates: start: 20140428, end: 20140502
  2. CARDIOASPIRIN [Concomitant]
     Indication: CARDIOVASCULAR EVENT PROPHYLAXIS
     Route: 048
  3. LASIX [Concomitant]
     Indication: HYPERTENSION
     Route: 048
  4. VALSARTAN [Concomitant]
     Indication: HYPERTENSION
     Route: 048
  5. QUINAPRIL HYDROCHLORIDE/HYDROCHLOROTHIAZIDE [Concomitant]
     Indication: HYPERTENSION
     Route: 048
  6. OMEPRAZOLE [Concomitant]
     Indication: PROPHYLAXIS AGAINST GASTROINTESTINAL ULCER
     Route: 048

REACTIONS (5)
  - Dyskinesia [Recovered/Resolved]
  - Dysphagia [Recovered/Resolved]
  - Atrial fibrillation [Recovered/Resolved]
  - Respiratory failure [Unknown]
  - Confusional state [Unknown]
